FAERS Safety Report 8624227-8 (Version None)
Quarter: 2012Q3

REPORT INFORMATION
  Report Type: 
  Country: None (occurrence: None)
  Receive Date: 20120824
  Receipt Date: 20120824
  Transmission Date: 20120928
  Serious: Yes (Other)
  Sender: FDA-Public Use
  Company Number: None

PATIENT
  Age: 61 Year
  Sex: Female
  Weight: 95.2554 kg

DRUGS (1)
  1. SAPHRIS [Suspect]
     Indication: BIPOLAR DISORDER
     Dosage: BID S.L.
     Route: 060
     Dates: start: 20120728, end: 20120731

REACTIONS (3)
  - HALLUCINATIONS, MIXED [None]
  - OEDEMA PERIPHERAL [None]
  - DISORIENTATION [None]
